FAERS Safety Report 19698645 (Version 1)
Quarter: 2021Q3

REPORT INFORMATION
  Report Type: Spontaneous
  Country: GB (occurrence: GB)
  Receive Date: 20210813
  Receipt Date: 20210813
  Transmission Date: 20211014
  Serious: No
  Sender: FDA-Public Use
  Company Number: GB-ALKEM LABORATORIES LIMITED-GB-ALKEM-2021-02549

PATIENT
  Age: 82 Year
  Sex: Female
  Weight: 73 kg

DRUGS (9)
  1. OMEPRAZOLE. [Concomitant]
     Active Substance: OMEPRAZOLE
     Indication: ILL-DEFINED DISORDER
     Dosage: UNK (ONE TO BE TAKEN EACH DAY)
     Route: 065
     Dates: start: 20200310
  2. RAMIPRIL. [Concomitant]
     Active Substance: RAMIPRIL
     Indication: ILL-DEFINED DISORDER
     Dosage: UNK (TAKE ONE DAILY)
     Route: 065
     Dates: start: 20200310
  3. BINOSTO [Concomitant]
     Active Substance: ALENDRONATE SODIUM
     Indication: ILL-DEFINED DISORDER
     Dosage: UNK (TAKE ONE WEEKLY)
     Route: 065
     Dates: start: 20201113
  4. PARACETAMOL [Concomitant]
     Active Substance: ACETAMINOPHEN
     Indication: ILL-DEFINED DISORDER
     Dosage: UNK (TAKE 2 4 TIMES/DAY)
     Route: 065
     Dates: start: 20200310
  5. COCODAMOL [Concomitant]
     Active Substance: ACETAMINOPHEN\CODEINE PHOSPHATE
     Indication: ILL-DEFINED DISORDER
     Dosage: UNK (TAKE TWO 4 TIMES/DAY)
     Route: 065
     Dates: start: 20210225
  6. EVACAL D3 CHEWABLE [Concomitant]
     Indication: ILL-DEFINED DISORDER
     Dosage: UNK (TAKE ONE TWICE DAILY)
     Route: 065
     Dates: start: 20200310
  7. GABAPENTIN. [Concomitant]
     Active Substance: GABAPENTIN
     Indication: ILL-DEFINED DISORDER
     Dosage: UNK (TAKE ONE THREE TIMES A DAY)
     Route: 065
     Dates: start: 20210225
  8. COSMOCOL [Concomitant]
     Indication: ILL-DEFINED DISORDER
     Dosage: UNK (1?2 SACHETS DAILY AS REQUIRED)
     Route: 065
     Dates: start: 20210119, end: 20210218
  9. PREGABALIN. [Suspect]
     Active Substance: PREGABALIN
     Indication: PRODUCT USED FOR UNKNOWN INDICATION
     Dosage: UNK (25MG CAPSULE)
     Route: 065
     Dates: start: 20210225

REACTIONS (1)
  - Rash [Recovered/Resolved]

NARRATIVE: CASE EVENT DATE: 20210302
